FAERS Safety Report 4714090-X (Version None)
Quarter: 2005Q3

REPORT INFORMATION
  Report Type: 
  Country: None (occurrence: None)
  Receive Date: 20050712
  Receipt Date: 20050628
  Transmission Date: 20060218
  Serious: Yes (Hospitalization)
  Sender: FDA-Public Use
  Company Number: FR_050606548

PATIENT
  Age: 40 Year
  Sex: Female

DRUGS (6)
  1. PROZAC [Suspect]
     Indication: DEPRESSION
     Dates: start: 20050115, end: 20050121
  2. OXAZEPAM [Concomitant]
  3. TERCIAN (CYAMEMAZINE) [Concomitant]
  4. GLUCOPHAGE (METFORMIN /00082701/) [Concomitant]
  5. GLYBURIDE [Concomitant]
  6. PRAVASTATIN [Concomitant]

REACTIONS (10)
  - FACE OEDEMA [None]
  - GAMMA-GLUTAMYLTRANSFERASE INCREASED [None]
  - INFLAMMATION [None]
  - LEUKOCYTOSIS [None]
  - NEUTROPHIL PERCENTAGE INCREASED [None]
  - OEDEMA PERIPHERAL [None]
  - PROTEINURIA [None]
  - RASH PAPULAR [None]
  - RASH PRURITIC [None]
  - URTICARIA [None]
